FAERS Safety Report 9470322 (Version 1)
Quarter: 2013Q3

REPORT INFORMATION
  Report Type: Report from Study
  Country: US (occurrence: US)
  Receive Date: 20130822
  Receipt Date: 20130822
  Transmission Date: 20140515
  Serious: Yes (Other)
  Sender: FDA-Public Use
  Company Number: US-SANOFI-AVENTIS-2013SA083447

PATIENT
  Sex: Female

DRUGS (2)
  1. AUBAGIO [Suspect]
     Route: 048
     Dates: start: 20130614
  2. SOLU-MEDROL [Concomitant]
     Route: 065

REACTIONS (7)
  - Fall [Unknown]
  - Contusion [Unknown]
  - Muscular weakness [Unknown]
  - Dysstasia [Unknown]
  - Gait disturbance [Unknown]
  - Incontinence [Unknown]
  - Feeling abnormal [Unknown]
